FAERS Safety Report 9879570 (Version 2)
Quarter: 2014Q1

REPORT INFORMATION
  Report Type: Spontaneous
  Country: US (occurrence: US)
  Receive Date: 20140206
  Receipt Date: 20140224
  Transmission Date: 20141002
  Serious: Yes (Other)
  Sender: FDA-Public Use
  Company Number: US-JNJFOC-20140119579

PATIENT
  Sex: Female
  Weight: 88.91 kg

DRUGS (6)
  1. INVOKANA [Suspect]
     Indication: DIABETES MELLITUS
     Route: 048
     Dates: start: 20130927
  2. INVOKANA [Suspect]
     Indication: DIABETES MELLITUS
     Route: 048
     Dates: start: 201309, end: 201309
  3. METFORMIN [Concomitant]
     Indication: TYPE 2 DIABETES MELLITUS
     Dates: start: 2010
  4. LEVEMIR [Concomitant]
     Indication: TYPE 2 DIABETES MELLITUS
     Dates: start: 20120809
  5. ELAVIL [Concomitant]
     Indication: INSOMNIA
     Dates: start: 20130517
  6. LORTAB [Concomitant]
     Indication: PAIN
     Dates: start: 2007

REACTIONS (6)
  - Drug withdrawal syndrome [Recovered/Resolved]
  - Weight increased [Unknown]
  - Increased appetite [Recovered/Resolved]
  - Off label use [Unknown]
  - Wrong technique in drug usage process [Unknown]
  - Incorrect dose administered [Unknown]
